FAERS Safety Report 24686630 (Version 1)
Quarter: 2024Q4

REPORT INFORMATION
  Report Type: Spontaneous
  Country: US (occurrence: None)
  Receive Date: 20241202
  Receipt Date: 20241202
  Transmission Date: 20250115
  Serious: Yes (Hospitalization)
  Sender: Public
  Company Number: None

PATIENT
  Age: 55 Year
  Sex: Female

DRUGS (4)
  1. REBIF [Suspect]
     Active Substance: INTERFERON BETA-1A
     Indication: Multiple sclerosis
     Dosage: FREQ: INJECT 1 SYRINGE (44 MCG) INTO THE SKIN THREE TIMES A WEEK.
     Route: 058
     Dates: start: 20150701
  2. ENGERIX-B [Concomitant]
     Active Substance: HEPATITIS B VIRUS SUBTYPE ADW2 HBSAG SURFACE PROTEIN ANTIGEN
     Dosage: INJECT 1 SYRINGE (44 MCG) INTO THE SKIN THREE TIMES A WEEK.
  3. KP VITAMIN D [Concomitant]
  4. REBIF [Concomitant]
     Active Substance: INTERFERON BETA-1A

REACTIONS (2)
  - Disease recurrence [None]
  - Therapy interrupted [None]

NARRATIVE: CASE EVENT DATE: 20241101
